FAERS Safety Report 17088142 (Version 1)
Quarter: 2019Q4

REPORT INFORMATION
  Report Type: Report from Study
  Country: US (occurrence: US)
  Receive Date: 20191128
  Receipt Date: 20191128
  Transmission Date: 20200122
  Serious: Yes (Hospitalization, Other)
  Sender: FDA-Public Use
  Company Number: US-GILEAD-2019-0439664

PATIENT
  Age: 47 Year
  Sex: Female
  Weight: 55.78 kg

DRUGS (2)
  1. AMBRISENTAN [Suspect]
     Active Substance: AMBRISENTAN
     Indication: PULMONARY ARTERIAL HYPERTENSION
     Dosage: UNK
     Route: 065
  2. REMODULIN [Suspect]
     Active Substance: TREPROSTINIL
     Indication: PULMONARY ARTERIAL HYPERTENSION
     Dosage: 105 NANOGRAM PER KILOGRAM, Q1MINUTE
     Route: 058
     Dates: start: 20031125

REACTIONS (6)
  - Myocardial infarction [Unknown]
  - Oxygen saturation decreased [Unknown]
  - Chest pain [Unknown]
  - Thrombosis [Unknown]
  - Nasal congestion [Not Recovered/Not Resolved]
  - Malaise [Unknown]

NARRATIVE: CASE EVENT DATE: 20191117
